FAERS Safety Report 10933240 (Version 3)
Quarter: 2015Q2

REPORT INFORMATION
  Report Type: Report from Study
  Country: US (occurrence: US)
  Receive Date: 20150320
  Receipt Date: 20150514
  Transmission Date: 20150821
  Serious: Yes (Death, Hospitalization, Other)
  Sender: FDA-Public Use
  Company Number: US-BAYER-2014-184654

PATIENT
  Age: 66 Year
  Sex: Male
  Weight: 88.89 kg

DRUGS (40)
  1. METFORMIN [Concomitant]
     Active Substance: METFORMIN HYDROCHLORIDE
  2. THIAMINE [Concomitant]
     Active Substance: THIAMINE
  3. ACYCLOVIR [ACICLOVIR] [Concomitant]
     Active Substance: ACYCLOVIR
  4. ALBUMIN [Concomitant]
     Active Substance: ALBUMIN (HUMAN)
  5. NEXAVAR [Suspect]
     Active Substance: SORAFENIB
     Indication: HEPATIC CANCER
     Dosage: DAILY DOSE 800 MG
     Route: 048
     Dates: end: 20150427
  6. ALLOPURINOL. [Concomitant]
     Active Substance: ALLOPURINOL
  7. INDAPAMIDE. [Concomitant]
     Active Substance: INDAPAMIDE
  8. LACTULOSE. [Concomitant]
     Active Substance: LACTULOSE
  9. OXYCODONE [Concomitant]
     Active Substance: OXYCODONE
  10. AMBIEN [Concomitant]
     Active Substance: ZOLPIDEM TARTRATE
  11. FOSPHENYTOIN [Concomitant]
     Active Substance: FOSPHENYTOIN\FOSPHENYTOIN SODIUM
  12. TYLENOL [Concomitant]
     Active Substance: ACETAMINOPHEN
     Dosage: UNK UNK, PRN
  13. DILAUDID [Concomitant]
     Active Substance: HYDROMORPHONE HYDROCHLORIDE
  14. LORAZEPAM. [Concomitant]
     Active Substance: LORAZEPAM
  15. ZOFRAN [Concomitant]
     Active Substance: ONDANSETRON HYDROCHLORIDE
  16. NEXAVAR [Suspect]
     Active Substance: SORAFENIB
     Indication: HEPATIC CANCER
     Dosage: UNK
     Route: 048
     Dates: start: 2009, end: 2010
  17. AMANTADINE [Concomitant]
     Active Substance: AMANTADINE
  18. KCL [Concomitant]
     Active Substance: POTASSIUM CHLORIDE
  19. LASIX [Concomitant]
     Active Substance: FUROSEMIDE
  20. CEFTRIAXONE. [Concomitant]
     Active Substance: CEFTRIAXONE
  21. VANCOMYCIN [Concomitant]
     Active Substance: VANCOMYCIN
     Dosage: UNK UNK, PRN
  22. NEXAVAR [Suspect]
     Active Substance: SORAFENIB
     Indication: HEPATIC CANCER
     Dosage: DAILY DOSE 800 MG
     Route: 048
     Dates: start: 20130207, end: 201501
  23. ONDANSETRON [Concomitant]
     Active Substance: ONDANSETRON
  24. INSULIN LISPRO [Concomitant]
     Active Substance: INSULIN LISPRO
  25. VERSED [Concomitant]
     Active Substance: MIDAZOLAM HYDROCHLORIDE
  26. LABETALOL [Concomitant]
     Active Substance: LABETALOL\LABETALOL HYDROCHLORIDE
  27. ZOLPIDEM [Concomitant]
     Active Substance: ZOLPIDEM\ZOLPIDEM TARTRATE
  28. COLLAGENASE SANTYL [Concomitant]
     Active Substance: COLLAGENASE CLOSTRIDIUM HISTOLYTICUM
  29. RIFAXIMIN [Concomitant]
     Active Substance: RIFAXIMIN
  30. PAXIL [Concomitant]
     Active Substance: PAROXETINE HYDROCHLORIDE
  31. MS CONTIN [Concomitant]
     Active Substance: MORPHINE SULFATE
  32. HALDOL [Concomitant]
     Active Substance: HALOPERIDOL
  33. PHYTONADIONE. [Concomitant]
     Active Substance: PHYTONADIONE
  34. GLIPIZIDE. [Concomitant]
     Active Substance: GLIPIZIDE
  35. FOLIC ACID. [Concomitant]
     Active Substance: FOLIC ACID
  36. FENTANYL. [Concomitant]
     Active Substance: FENTANYL
  37. NEXAVAR [Suspect]
     Active Substance: SORAFENIB
     Indication: HEPATIC CANCER
     Dosage: 400 MG, BID
     Route: 048
     Dates: start: 201005
  38. PAROXETINE [Concomitant]
     Active Substance: PAROXETINE\PAROXETINE HYDROCHLORIDE
  39. LIDOCAINE. [Concomitant]
     Active Substance: LIDOCAINE
  40. DIPHENHYDRAMINE [Concomitant]
     Active Substance: DIPHENHYDRAMINE

REACTIONS (22)
  - Rectal haemorrhage [None]
  - Acute myocardial infarction [None]
  - Hypernatraemia [None]
  - Metastases to adrenals [None]
  - Nausea [None]
  - Death [Fatal]
  - Platelet count decreased [None]
  - Dehydration [None]
  - Insomnia [None]
  - Renal disorder [None]
  - Encephalopathy [None]
  - Encephalomalacia [None]
  - Musculoskeletal pain [None]
  - Acute hepatitis C [None]
  - Spinal deformity [None]
  - Metastases to chest wall [None]
  - Ascites [None]
  - Anaemia [None]
  - Acute kidney injury [None]
  - Pneumonia [None]
  - Acute respiratory failure [None]
  - Portal vein thrombosis [None]

NARRATIVE: CASE EVENT DATE: 20141208
